FAERS Safety Report 8597161-X (Version None)
Quarter: 2012Q3

REPORT INFORMATION
  Report Type: 
  Country: None (occurrence: None)
  Receive Date: 20120816
  Receipt Date: 20120808
  Transmission Date: 20120928
  Serious: No
  Sender: FDA-Public Use
  Company Number: US-BIOGENIDEC-2012BI030387

PATIENT
  Sex: Female

DRUGS (3)
  1. INTERFERON BETA-1A [Concomitant]
     Route: 030
     Dates: start: 20120806
  2. INTERFERON BETA-1A [Concomitant]
     Indication: MULTIPLE SCLEROSIS
     Route: 030
     Dates: start: 20030517, end: 20081115
  3. TYSABRI [Suspect]
     Indication: MULTIPLE SCLEROSIS
     Route: 042
     Dates: start: 20090225, end: 20090506

REACTIONS (1)
  - URINARY TRACT INFECTION [None]
